FAERS Safety Report 24340296 (Version 1)
Quarter: 2024Q3

REPORT INFORMATION
  Report Type: Spontaneous
  Country: US (occurrence: None)
  Receive Date: 20240919
  Receipt Date: 20240919
  Transmission Date: 20241016
  Serious: Yes (Other)
  Sender: Public
  Company Number: None

PATIENT
  Age: 24 Year
  Sex: Female
  Weight: 62.82 kg

DRUGS (1)
  1. NICOTINE TRANSDERMAL SYSTEM [Suspect]
     Active Substance: NICOTINE
     Indication: Nicotine dependence
     Dosage: FREQUENCY : DAILY;?
     Route: 062
     Dates: start: 20240704, end: 20240705

REACTIONS (4)
  - Application site rash [None]
  - Rash papular [None]
  - Rash erythematous [None]
  - Drug hypersensitivity [None]

NARRATIVE: CASE EVENT DATE: 20240705
